FAERS Safety Report 7712496-8 (Version None)
Quarter: 2011Q3

REPORT INFORMATION
  Report Type: 
  Country: None (occurrence: None)
  Receive Date: 20110826
  Receipt Date: 20110826
  Transmission Date: 20111222
  Serious: Yes (Hospitalization)
  Sender: FDA-Public Use
  Company Number: None

PATIENT
  Age: 74 Year
  Sex: Male
  Weight: 78.5 kg

DRUGS (1)
  1. ARICEPT [Suspect]
     Indication: DEMENTIA
     Route: 048
     Dates: start: 20110711, end: 20110816

REACTIONS (4)
  - OROPHARYNGEAL PAIN [None]
  - TOXIC EPIDERMAL NECROLYSIS [None]
  - RASH [None]
  - PYREXIA [None]
